APPROVED DRUG PRODUCT: HYDROCORTONE
Active Ingredient: HYDROCORTISONE ACETATE
Strength: 25MG/ML
Dosage Form/Route: INJECTABLE;INJECTION
Application: N008228 | Product #001
Applicant: MERCK AND CO INC
Approved: Approved Prior to Jan 1, 1982 | RLD: No | RS: No | Type: DISCN